FAERS Safety Report 7389890-0 (Version None)
Quarter: 2011Q2

REPORT INFORMATION
  Report Type: 
  Country: None (occurrence: None)
  Receive Date: 20110401
  Receipt Date: 20110304
  Transmission Date: 20111010
  Serious: Yes (Hospitalization, Other)
  Sender: FDA-Public Use
  Company Number: US-BAYER-201041712NA

PATIENT
  Sex: Female
  Weight: 66.213 kg

DRUGS (3)
  1. NSAID'S [Concomitant]
  2. YAZ [Suspect]
     Indication: MENSTRUATION IRREGULAR
     Route: 048
     Dates: start: 20090301, end: 20090501
  3. YAZ [Suspect]
     Indication: PREMENSTRUAL SYNDROME

REACTIONS (1)
  - PULMONARY EMBOLISM [None]
